FAERS Safety Report 8251693-2 (Version None)
Quarter: 2012Q2

REPORT INFORMATION
  Report Type: 
  Country: None (occurrence: None)
  Receive Date: 20120402
  Receipt Date: 20120130
  Transmission Date: 20120825
  Serious: No
  Sender: FDA-Public Use
  Company Number: US-ABBOTT-12P-163-0901180-00

PATIENT
  Age: 51 Year
  Sex: Male
  Weight: 68.1 kg

DRUGS (5)
  1. JANUVIA [Concomitant]
     Indication: TYPE 2 DIABETES MELLITUS
  2. ANDROGEL [Suspect]
     Indication: BLOOD TESTOSTERONE DECREASED
     Dosage: 2 PUMPS DAILY
     Route: 061
     Dates: start: 20120119
  3. GLYBURIDE [Suspect]
     Indication: TYPE 2 DIABETES MELLITUS
     Dates: start: 20120119
  4. METFORMIN HCL [Concomitant]
     Indication: TYPE 2 DIABETES MELLITUS
  5. ANDROGEL [Suspect]
     Indication: FATIGUE

REACTIONS (1)
  - BLOOD GLUCOSE DECREASED [None]
